FAERS Safety Report 21352531 (Version 2)
Quarter: 2022Q3

REPORT INFORMATION
  Report Type: Spontaneous
  Country: ES (occurrence: ES)
  Receive Date: 20220920
  Receipt Date: 20220921
  Transmission Date: 20221027
  Serious: Yes (Hospitalization, Disabling, Other)
  Sender: FDA-Public Use
  Company Number: ES-AEMPS-1255999

PATIENT
  Age: 52 Year
  Sex: Male
  Weight: 94 kg

DRUGS (6)
  1. POMALIDOMIDE [Suspect]
     Active Substance: POMALIDOMIDE
     Indication: Plasma cell myeloma
     Dosage: 4MG
     Route: 048
     Dates: start: 20220720, end: 20220810
  2. SARCLISA [Suspect]
     Active Substance: ISATUXIMAB-IRFC
     Indication: Plasma cell myeloma
     Dosage: 940 MG/SEMANA
     Route: 042
     Dates: start: 20220720, end: 20220810
  3. PREGABALINA ACCORD [Concomitant]
     Indication: Product used for unknown indication
     Dosage: 125 MG/24H
     Route: 065
  4. FLUOXETINA ALMUS [Concomitant]
     Indication: Product used for unknown indication
     Dosage: 40 MG/24H
     Route: 065
  5. OZEMPIC [Concomitant]
     Active Substance: SEMAGLUTIDE
     Indication: Type 2 diabetes mellitus
     Dosage: 1 MG/SEMANA
     Route: 065
  6. INSULIN LISPRO [Concomitant]
     Active Substance: INSULIN LISPRO
     Indication: Insulin-requiring type 2 diabetes mellitus
     Route: 065

REACTIONS (2)
  - Peripheral ischaemia [Recovered/Resolved with Sequelae]
  - Localised infection [Recovered/Resolved with Sequelae]

NARRATIVE: CASE EVENT DATE: 20220817
